FAERS Safety Report 5802305-6 (Version None)
Quarter: 2008Q3

REPORT INFORMATION
  Report Type: 
  Country: None (occurrence: None)
  Receive Date: 20080707
  Receipt Date: 20080625
  Transmission Date: 20090109
  Serious: Yes (Hospitalization, Other)
  Sender: FDA-Public Use
  Company Number: FR-ROCHE-561127

PATIENT
  Age: 56 Year
  Sex: Female
  Weight: 60 kg

DRUGS (9)
  1. PEGASYS [Suspect]
     Indication: HEPATITIS C
     Dosage: FORM: INJECTABLE SOLUTION.
     Route: 058
     Dates: start: 20070907, end: 20071026
  2. COPEGUS [Suspect]
     Indication: HEPATITIS C
     Dosage: TAKEN DAILY.
     Route: 048
     Dates: start: 20070907, end: 20071026
  3. 1 CONCOMITANT DRUG [Concomitant]
     Dosage: DRUG REPORTED AS ZARTAN.
  4. CORTANCYL [Concomitant]
     Route: 048
     Dates: start: 19820101
  5. AMLOR [Concomitant]
     Indication: HYPERTENSION
     Dosage: ONE DOSE PER DAY.
     Route: 048
     Dates: start: 20050101, end: 20071102
  6. ROCALTROL [Concomitant]
     Indication: OSTEOPOROSIS
     Dosage: ONE DOSE PER DAY.
     Route: 048
     Dates: start: 20050801
  7. LEVOTHYROX [Concomitant]
     Indication: THYROIDECTOMY
     Route: 048
     Dates: start: 20051206
  8. PLAVIX [Concomitant]
     Route: 048
     Dates: start: 20060901
  9. CALCIDIA [Concomitant]
     Dosage: ONE DOSE PER DAY.
     Route: 048
     Dates: start: 20060101

REACTIONS (6)
  - BRAIN NATRIURETIC PEPTIDE INCREASED [None]
  - CARDIOMEGALY [None]
  - COUGH [None]
  - DYSPNOEA [None]
  - LEFT VENTRICULAR FAILURE [None]
  - MITRAL VALVE INCOMPETENCE [None]
